FAERS Safety Report 8994888 (Version 1)
Quarter: 2013Q1

REPORT INFORMATION
  Report Type: Spontaneous
  Country: US (occurrence: US)
  Receive Date: 20130102
  Receipt Date: 20130102
  Transmission Date: 20140127
  Serious: No
  Sender: FDA-Public Use
  Company Number: US-AMGEN-USASP2012078201

PATIENT
  Age: 55 Year
  Sex: Male

DRUGS (2)
  1. ENBREL [Suspect]
     Indication: RHEUMATOID ARTHRITIS
     Dosage: 50 MG, QWK
     Dates: start: 20010101
  2. HUMIRA [Concomitant]
     Dosage: UNK

REACTIONS (6)
  - Overdose [Recovered/Resolved]
  - Local swelling [Recovered/Resolved]
  - Joint swelling [Recovered/Resolved]
  - Drug effect decreased [Recovered/Resolved]
  - Infection [Recovered/Resolved]
  - Inappropriate schedule of drug administration [Recovered/Resolved]
